FAERS Safety Report 18448501 (Version 1)
Quarter: 2020Q4

REPORT INFORMATION
  Report Type: Spontaneous
  Country: GB (occurrence: GB)
  Receive Date: 20201031
  Receipt Date: 20201031
  Transmission Date: 20210114
  Serious: Yes (Life-Threatening)
  Sender: FDA-Public Use
  Company Number: GB-TEVA-2020-GB-1842398

PATIENT
  Age: 2 Year
  Sex: Female
  Weight: 9 kg

DRUGS (3)
  1. AMOXICILLIN. [Suspect]
     Active Substance: AMOXICILLIN
     Dosage: 15 ML, 250MG/5ML SUGAR FREE
     Dates: start: 20200925
  2. DIPROBASE [Concomitant]
     Active Substance: CHLOROCRESOL
     Dosage: USE AS DIRECTED
     Dates: start: 20190722
  3. ERYTHROMYCIN ETHYLSUCCINATE. [Concomitant]
     Active Substance: ERYTHROMYCIN ETHYLSUCCINATE
     Dosage: 20 ML
     Dates: start: 20200925

REACTIONS (1)
  - Rash [Recovered/Resolved]

NARRATIVE: CASE EVENT DATE: 20200925
